FAERS Safety Report 5788473-3 (Version None)
Quarter: 2008Q2

REPORT INFORMATION
  Report Type: 
  Country: None (occurrence: None)
  Receive Date: 20080625
  Receipt Date: 20080625
  Transmission Date: 20081010
  Serious: Yes (Life-Threatening)
  Sender: FDA-Public Use
  Company Number: None

PATIENT
  Sex: Female
  Weight: 68.0396 kg

DRUGS (1)
  1. ALENDRONATE SODIUM [Suspect]
     Indication: BONE DISORDER
     Dosage: 1 TABLET ONCE WEEKLY PO
     Route: 048
     Dates: start: 20080303, end: 20080428

REACTIONS (3)
  - ATRIAL FIBRILLATION [None]
  - PHARMACEUTICAL PRODUCT COMPLAINT [None]
  - THERAPEUTIC RESPONSE UNEXPECTED WITH DRUG SUBSTITUTION [None]
